FAERS Safety Report 23530037 (Version 1)
Quarter: 2024Q1

REPORT INFORMATION
  Report Type: Spontaneous
  Country: US (occurrence: US)
  Receive Date: 20240216
  Receipt Date: 20240216
  Transmission Date: 20240410
  Serious: No
  Sender: FDA-Public Use
  Company Number: US-AUROBINDO-AUR-APL-2023-068053

PATIENT
  Sex: Male
  Weight: 95.254 kg

DRUGS (2)
  1. FAMOTIDINE [Suspect]
     Active Substance: FAMOTIDINE
     Indication: Gastrooesophageal reflux disease
     Dosage: 1 DOSAGE FORM
     Route: 048
     Dates: start: 20231105
  2. FAMOTIDINE [Suspect]
     Active Substance: FAMOTIDINE
     Dosage: 1 DOSAGE FORM
     Route: 048
     Dates: start: 20231106

REACTIONS (2)
  - Abdominal discomfort [Not Recovered/Not Resolved]
  - Expired product administered [Not Recovered/Not Resolved]

NARRATIVE: CASE EVENT DATE: 20231105
